FAERS Safety Report 9259013 (Version 1)
Quarter: 2013Q2

REPORT INFORMATION
  Report Type: Spontaneous
  Country: IT (occurrence: IT)
  Receive Date: 20130426
  Receipt Date: 20130426
  Transmission Date: 20140414
  Serious: Yes (Hospitalization)
  Sender: FDA-Public Use
  Company Number: IT-ASTRAZENECA-2013SE26516

PATIENT
  Age: 23292 Day
  Sex: Male

DRUGS (1)
  1. TICAGRELOR [Suspect]
     Route: 048
     Dates: start: 20121125

REACTIONS (1)
  - Urticaria [Recovering/Resolving]
